FAERS Safety Report 9288778 (Version 1)
Quarter: 2013Q2

REPORT INFORMATION
  Report Type: Spontaneous
  Country: CN (occurrence: CN)
  Receive Date: 20130514
  Receipt Date: 20130514
  Transmission Date: 20140414
  Serious: Yes (Death, Other)
  Sender: FDA-Public Use
  Company Number: CN-ELI_LILLY_AND_COMPANY-CN201305001875

PATIENT
  Age: 81 Year
  Sex: Male

DRUGS (2)
  1. GEMCITABINE HYDROCHLORIDE [Suspect]
     Indication: DIFFUSE LARGE B-CELL LYMPHOMA
     Dosage: 1000 MG/M2, OTHER
     Route: 042
  2. OXALIPLATIN [Concomitant]
     Dosage: 100 MG/M2, OTHER
     Route: 042

REACTIONS (2)
  - Sudden death [Fatal]
  - Cardiac failure [None]
